FAERS Safety Report 8210155-9 (Version None)
Quarter: 2012Q1

REPORT INFORMATION
  Report Type: 
  Country: None (occurrence: None)
  Receive Date: 20120314
  Receipt Date: 20110907
  Transmission Date: 20120608
  Serious: No
  Sender: FDA-Public Use
  Company Number: US-ASTRAZENECA-2011SE53632

PATIENT
  Age: 76 Year
  Sex: Female

DRUGS (11)
  1. LEVOTHYROXINE SODIUM [Concomitant]
     Indication: HYPOTHYROIDISM
  2. TOPROL-XL [Suspect]
     Indication: HYPERTENSION
     Route: 048
  3. MELOXICAM [Concomitant]
     Indication: ARTHRITIS
  4. SIMVASTATIN [Suspect]
     Indication: BLOOD CHOLESTEROL INCREASED
     Route: 065
  5. SEROQUEL [Suspect]
     Indication: BIPOLAR DISORDER
     Route: 048
  6. NEURONTIN [Suspect]
     Route: 065
  7. AMLODIPINE [Concomitant]
     Indication: HYPERTENSION
  8. BENAZEPRIL HYDROCHLORIDE [Concomitant]
     Indication: ARTHRITIS
  9. OMEPRAZOLE [Concomitant]
     Indication: GASTROOESOPHAGEAL REFLUX DISEASE
  10. ASPIRIN [Concomitant]
     Indication: GASTROOESOPHAGEAL REFLUX DISEASE
  11. VIIBRYD [Suspect]
     Indication: BIPOLAR DISORDER
     Route: 048
     Dates: start: 20110817

REACTIONS (2)
  - SOMNOLENCE [None]
  - FEELING ABNORMAL [None]
